FAERS Safety Report 7907115-1 (Version None)
Quarter: 2011Q4

REPORT INFORMATION
  Report Type: 
  Country: None (occurrence: None)
  Receive Date: 20111110
  Receipt Date: 20110916
  Transmission Date: 20120403
  Serious: Yes (Hospitalization)
  Sender: FDA-Public Use
  Company Number: US-ASTRAZENECA-2011SE55882

PATIENT
  Age: 46 Year
  Sex: Female

DRUGS (4)
  1. HYDROCHLOROTHIAZIDE [Suspect]
  2. LISINOPRIL [Suspect]
  3. BYSTOLIC [Concomitant]
  4. LOSARTAN [Suspect]

REACTIONS (2)
  - SWOLLEN TONGUE [None]
  - BACK PAIN [None]
